FAERS Safety Report 6316747-6 (Version None)
Quarter: 2009Q3

REPORT INFORMATION
  Report Type: 
  Country: None (occurrence: None)
  Receive Date: 20090820
  Receipt Date: 20090812
  Transmission Date: 20100115
  Serious: Yes (Hospitalization)
  Sender: FDA-Public Use
  Company Number: US-CELGENEUS-163-21880-09080197

PATIENT
  Sex: Female

DRUGS (2)
  1. REVLIMID [Suspect]
     Indication: MULTIPLE MYELOMA
     Route: 048
     Dates: start: 20080626, end: 20090705
  2. REVLIMID [Suspect]
     Route: 048
     Dates: start: 20090713

REACTIONS (3)
  - COLITIS [None]
  - DIARRHOEA [None]
  - RECTAL HAEMORRHAGE [None]
